FAERS Safety Report 25219701 (Version 1)
Quarter: 2025Q2

REPORT INFORMATION
  Report Type: Spontaneous
  Country: US (occurrence: None)
  Receive Date: 20250418
  Receipt Date: 20250418
  Transmission Date: 20250716
  Serious: Yes (Other)
  Sender: FDA-CTU
  Company Number: None

PATIENT

DRUGS (1)
  1. AMOXICILLIN [Suspect]
     Active Substance: AMOXICILLIN
     Indication: Antibiotic prophylaxis
     Dosage: 2 TABLETS EVERY 6 HOURS ORAL?
     Route: 048
     Dates: start: 20250414, end: 20250414

REACTIONS (2)
  - Blood pressure increased [None]
  - Product formulation issue [None]

NARRATIVE: CASE EVENT DATE: 20250414
